FAERS Safety Report 5085184-7 (Version None)
Quarter: 2006Q3

REPORT INFORMATION
  Report Type: 
  Country: None (occurrence: None)
  Receive Date: 20060822
  Receipt Date: 20060705
  Transmission Date: 20061208
  Serious: Yes (Other)
  Sender: FDA-Public Use
  Company Number: NL-ABBOTT-06P-114-0337684-00

PATIENT
  Sex: Female

DRUGS (18)
  1. RITONAVIR SOFT GELATIN CAPSULES [Suspect]
     Indication: DRUG EXPOSURE DURING PREGNANCY
  2. RITONAVIR SOFT GELATIN CAPSULES [Suspect]
     Indication: PROPHYLAXIS
  3. KALETRA [Suspect]
     Indication: PROPHYLAXIS
  4. TIPRANAVIR [Suspect]
     Indication: DRUG EXPOSURE DURING PREGNANCY
  5. NEVIRAPINE [Suspect]
     Indication: DRUG EXPOSURE DURING PREGNANCY
  6. ZIDOVUDINE [Suspect]
     Indication: DRUG EXPOSURE DURING PREGNANCY
  7. ZIDOVUDINE [Suspect]
  8. LAMIVUDINE [Suspect]
     Indication: PROPHYLAXIS
  9. LAMIVUDINE [Suspect]
  10. ABACAVIR [Suspect]
     Indication: DRUG EXPOSURE DURING PREGNANCY
  11. ABACAVIR [Suspect]
  12. TENOFOVIR [Suspect]
     Indication: DRUG EXPOSURE DURING PREGNANCY
  13. TENOFOVIR [Suspect]
  14. ENFUVIRTIDE [Suspect]
     Indication: DRUG EXPOSURE DURING PREGNANCY
  15. ENFUVIRTIDE [Suspect]
  16. STAVUDINE [Suspect]
     Indication: DRUG EXPOSURE DURING PREGNANCY
  17. NEVIRAPINE [Concomitant]
     Indication: PROPHYLAXIS
  18. NEVIRAPINE [Concomitant]

REACTIONS (2)
  - HAEMOGLOBIN DECREASED [None]
  - PREMATURE BABY [None]
